FAERS Safety Report 14803996 (Version 2)
Quarter: 2018Q3

REPORT INFORMATION
  Report Type: Spontaneous
  Country: US (occurrence: US)
  Receive Date: 20180425
  Receipt Date: 20180704
  Transmission Date: 20181010
  Serious: No
  Sender: FDA-Public Use
  Company Number: US-PFIZER INC-2018167435

PATIENT
  Age: 60 Year
  Sex: Male

DRUGS (1)
  1. PHENYTOIN. [Suspect]
     Active Substance: PHENYTOIN
     Indication: SEIZURE
     Dosage: 300 MG, 1X/DAY, AT NIGHT
     Route: 048
     Dates: start: 20161221, end: 201702

REACTIONS (7)
  - Nausea [Unknown]
  - Weight increased [Recovering/Resolving]
  - Feeling drunk [Unknown]
  - Anger [Unknown]
  - Vertigo [Unknown]
  - Drug level below therapeutic [Unknown]
  - Decreased activity [Recovering/Resolving]

NARRATIVE: CASE EVENT DATE: 20161221
